FAERS Safety Report 22604276 (Version 1)
Quarter: 2023Q2

REPORT INFORMATION
  Report Type: Spontaneous
  Country: US (occurrence: None)
  Receive Date: 20230614
  Receipt Date: 20230614
  Transmission Date: 20230722
  Serious: Yes (Hospitalization)
  Sender: FDA-Public Use
  Company Number: None

PATIENT
  Sex: Male

DRUGS (7)
  1. ABIRATERONE [Suspect]
     Active Substance: ABIRATERONE
     Indication: Prostate cancer
     Dosage: OTHER QUANTITY : 4T;?FREQUENCY : DAILY;?
     Route: 048
  2. PREDNISONE [Concomitant]
     Active Substance: PREDNISONE
  3. SODIUM BICARBONATE [Concomitant]
     Active Substance: SODIUM BICARBONATE
  4. ATENOLOL [Concomitant]
     Active Substance: ATENOLOL
  5. AMLODIPINE [Concomitant]
  6. SENEXON [Concomitant]
  7. OXYCODONE [Concomitant]

REACTIONS (2)
  - Dehydration [None]
  - Asthenia [None]
